FAERS Safety Report 20440387 (Version 1)
Quarter: 2022Q1

REPORT INFORMATION
  Report Type: Spontaneous
  Country: US (occurrence: None)
  Receive Date: 20220207
  Receipt Date: 20220207
  Transmission Date: 20220423
  Serious: Yes (Hospitalization, Other)
  Sender: FDA-Public Use
  Company Number: None

PATIENT
  Age: 34 Year
  Sex: Female
  Weight: 73.48 kg

DRUGS (7)
  1. GEODON [Suspect]
     Active Substance: ZIPRASIDONE HYDROCHLORIDE\ZIPRASIDONE MESYLATE
  2. SEROQUEL [Suspect]
     Active Substance: QUETIAPINE FUMARATE
  3. BENZTROPINE [Suspect]
     Active Substance: BENZTROPINE
  4. PROGESTERONE [Suspect]
     Active Substance: PROGESTERONE
  5. AMOXICILLIN [Concomitant]
     Active Substance: AMOXICILLIN
  6. LETROZOLE [Concomitant]
     Active Substance: LETROZOLE
  7. PEPCID [Suspect]
     Active Substance: FAMOTIDINE

REACTIONS (5)
  - Gestational diabetes [None]
  - Amniotic cavity infection [None]
  - Caesarean section [None]
  - Abnormal labour [None]
  - Premature baby [None]

NARRATIVE: CASE EVENT DATE: 20200315
